FAERS Safety Report 12225761 (Version 1)
Quarter: 2016Q1

REPORT INFORMATION
  Report Type: Spontaneous
  Country: HR (occurrence: HR)
  Receive Date: 20160331
  Receipt Date: 20160331
  Transmission Date: 20160526
  Serious: Yes (Death, Other)
  Sender: FDA-Public Use
  Company Number: HR-PFIZER INC-2016175207

PATIENT
  Age: 58 Year
  Sex: Male

DRUGS (8)
  1. AMPHETAMINE [Concomitant]
     Active Substance: AMPHETAMINE
     Indication: PYREXIA
     Dosage: UNK
  2. VITAMIN B1 [Concomitant]
     Active Substance: THIAMINE HYDROCHLORIDE
     Indication: MEDICAL DIET
     Dosage: UNK
  3. PROCAINE PENICILLIN [Suspect]
     Active Substance: PENICILLIN G PROCAINE
     Indication: PYREXIA
     Dosage: 400000 IU, UNK
  4. THEOBROMINE [Concomitant]
     Active Substance: THEOBROMINE
     Dosage: UNK
  5. PHENOBARBITAL. [Suspect]
     Active Substance: PHENOBARBITAL
     Dosage: UNK
  6. ATROPINE SULFATE. [Suspect]
     Active Substance: ATROPINE SULFATE
     Indication: ATRIOVENTRICULAR BLOCK
     Dosage: 0.5 MG, UNK (0.25 CM3)
     Route: 058
  7. GLUCOSE [Concomitant]
     Active Substance: DEXTROSE
     Indication: MEDICAL DIET
     Dosage: UNK
  8. DIGOXIN. [Suspect]
     Active Substance: DIGOXIN
     Dosage: UNK

REACTIONS (4)
  - Haemorrhage [Fatal]
  - Anaphylactic shock [Fatal]
  - Urticaria [Fatal]
  - Arrhythmia [Fatal]
